FAERS Safety Report 25420884 (Version 2)
Quarter: 2025Q2

REPORT INFORMATION
  Report Type: Spontaneous
  Country: JP (occurrence: JP)
  Receive Date: 20250611
  Receipt Date: 20250619
  Transmission Date: 20250716
  Serious: Yes (Other)
  Sender: SANOFI AVENTIS
  Company Number: JP-SA-2025SA164098

PATIENT
  Age: 44 Year
  Sex: Male

DRUGS (2)
  1. DUPIXENT [Suspect]
     Active Substance: DUPILUMAB
     Indication: Asthma
     Route: 058
  2. DUPIXENT [Suspect]
     Active Substance: DUPILUMAB
     Indication: Chronic eosinophilic rhinosinusitis

REACTIONS (2)
  - Hypereosinophilic syndrome [Unknown]
  - Eosinophilic granulomatosis with polyangiitis [Recovering/Resolving]

NARRATIVE: CASE EVENT DATE: 20250401
